FAERS Safety Report 17872015 (Version 1)
Quarter: 2020Q2

REPORT INFORMATION
  Report Type: Spontaneous
  Country: US (occurrence: US)
  Receive Date: 20200608
  Receipt Date: 20200608
  Transmission Date: 20200714
  Serious: Yes (Other)
  Sender: FDA-Public Use
  Company Number: US-AMGEN-USASP2020088232

PATIENT
  Age: 52 Year
  Sex: Male

DRUGS (4)
  1. REOLYSIN [Concomitant]
     Active Substance: PELAREOREP
     Dosage: 3 X 10^10  TCID50
  2. DEXAMETHASONE. [Concomitant]
     Active Substance: DEXAMETHASONE
     Indication: PLASMA CELL MYELOMA
     Dosage: 20 MILLIGRAM
  3. CARFILZOMIB [Suspect]
     Active Substance: CARFILZOMIB
     Indication: PLASMA CELL MYELOMA
     Dosage: 20 MILLIGRAM/SQ. METER, CYCLE 1 DAYS 1/2
     Route: 065
  4. CARFILZOMIB [Suspect]
     Active Substance: CARFILZOMIB
     Dosage: 56 MILLIGRAM/SQ. METER
     Route: 065

REACTIONS (3)
  - Plasma cell myeloma refractory [Unknown]
  - Therapy partial responder [Unknown]
  - Haemophagocytic lymphohistiocytosis [Unknown]
